FAERS Safety Report 4448545-2 (Version None)
Quarter: 2004Q3

REPORT INFORMATION
  Report Type: 
  Country: None (occurrence: None)
  Receive Date: 20040909
  Receipt Date: 20040820
  Transmission Date: 20050211
  Serious: Yes (Other)
  Sender: FDA-Public Use
  Company Number: EWC040840358

PATIENT
  Age: 14 Year
  Sex: Female

DRUGS (3)
  1. FLUOXETINE [Suspect]
     Indication: DEPRESSION
     Dosage: 20 MG/1
     Dates: start: 20040201
  2. IBUX (IBUPROFEN) [Concomitant]
  3. PARACET (PARACETAMOL) [Concomitant]

REACTIONS (1)
  - SELF INJURIOUS BEHAVIOUR [None]
